FAERS Safety Report 5828504-5 (Version None)
Quarter: 2008Q3

REPORT INFORMATION
  Report Type: 
  Country: None (occurrence: None)
  Receive Date: 20080729
  Receipt Date: 20080718
  Transmission Date: 20090109
  Serious: Yes (Hospitalization)
  Sender: FDA-Public Use
  Company Number: URSO-2008-060 FUP#1

PATIENT
  Age: 44 Year
  Sex: Male

DRUGS (7)
  1. URSO         (URSODEOXYCHOLIC ACID) [Suspect]
     Indication: ALCOHOLIC LIVER DISEASE
     Dosage: 600 MG,  ORAL
     Route: 048
  2. GLUCOSAMINE (GLUCOSAMINE) [Suspect]
  3. VITAMINE C        (VITAMINE C) [Suspect]
  4. TERMERIC          (MEDICINAL HERB) [Suspect]
  5. PROPOLIS UNDILUTED SOLUTION [Concomitant]
  6. SPIRULINA (DIETARY SUPPLEMENT) [Concomitant]
  7. AMINO TABLET [Concomitant]

REACTIONS (4)
  - ALTERED STATE OF CONSCIOUSNESS [None]
  - DISEASE PROGRESSION [None]
  - HEPATITIS ACUTE [None]
  - INTERNATIONAL NORMALISED RATIO INCREASED [None]
